FAERS Safety Report 13080119 (Version 2)
Quarter: 2017Q1

REPORT INFORMATION
  Report Type: Spontaneous
  Country: US (occurrence: US)
  Receive Date: 20170103
  Receipt Date: 20170110
  Transmission Date: 20170428
  Serious: Yes (Hospitalization)
  Sender: FDA-Public Use
  Company Number: US-VERTEX PHARMACEUTICALS-2016-007307

PATIENT
  Age: 44 Year
  Sex: Male

DRUGS (9)
  1. TOBI [Concomitant]
     Active Substance: TOBRAMYCIN
  2. AMPYRA [Concomitant]
     Active Substance: DALFAMPRIDINE
  3. CAYSTON [Concomitant]
     Active Substance: AZTREONAM
  4. GILENYA [Concomitant]
     Active Substance: FINGOLIMOD HYDROCHLORIDE
  5. HYPERSAL [Concomitant]
  6. ORKAMBI [Suspect]
     Active Substance: IVACAFTOR\LUMACAFTOR
     Indication: CYSTIC FIBROSIS
     Dosage: 2 DF, BID
     Route: 048
     Dates: start: 20150820
  7. PANCREASE MT [Concomitant]
     Active Substance: PANCRELIPASE
  8. PULMOZYME [Concomitant]
     Active Substance: DORNASE ALFA
  9. AZITHROMYCIN ANHYDROUS. [Concomitant]
     Active Substance: AZITHROMYCIN ANHYDROUS

REACTIONS (1)
  - Infective pulmonary exacerbation of cystic fibrosis [Not Recovered/Not Resolved]

NARRATIVE: CASE EVENT DATE: 20161213
